FAERS Safety Report 5262259-0 (Version None)
Quarter: 2007Q1

REPORT INFORMATION
  Report Type: 
  Country: None (occurrence: None)
  Receive Date: 20070308
  Receipt Date: 20070222
  Transmission Date: 20070707
  Serious: Yes (Other)
  Sender: FDA-Public Use
  Company Number: 2007RR-05977

PATIENT
  Age: 43 Year
  Sex: Female
  Weight: 125 kg

DRUGS (5)
  1. CITALOPRAM (CITALOPRAM) UNKNOWN [Suspect]
     Indication: DEPRESSION
     Dosage: 20 MG, ORAL
     Route: 048
     Dates: start: 20070124, end: 20070125
  2. CELECOXIB (CELECOXIB) UNKNOWN [Concomitant]
  3. CETIRIZINE (CETIRIZINE) [Concomitant]
  4. LANSOPRAZOLE [Concomitant]
  5. ACETAMINOPHEN [Concomitant]

REACTIONS (3)
  - ANXIETY [None]
  - INSOMNIA [None]
  - PANIC ATTACK [None]
